FAERS Safety Report 11445540 (Version 1)
Quarter: 2015Q3

REPORT INFORMATION
  Report Type: Spontaneous
  Country: FR (occurrence: FR)
  Receive Date: 20150902
  Receipt Date: 20150902
  Transmission Date: 20151125
  Serious: Yes (Other)
  Sender: FDA-Public Use
  Company Number: FR-PFIZER INC-2015286045

PATIENT
  Age: 71 Year
  Sex: Female

DRUGS (2)
  1. AROMASINE [Suspect]
     Active Substance: EXEMESTANE
     Indication: INVASIVE LOBULAR BREAST CARCINOMA
     Dosage: UNK
     Dates: start: 201211, end: 2013
  2. EVEROLIMUS [Concomitant]
     Active Substance: EVEROLIMUS
     Indication: INVASIVE LOBULAR BREAST CARCINOMA
     Dosage: UNK
     Dates: start: 201211

REACTIONS (7)
  - Lung infiltration [Unknown]
  - Venous thrombosis [Unknown]
  - Pulmonary mass [Unknown]
  - Pulmonary thrombosis [Unknown]
  - Pleural effusion [Recovered/Resolved]
  - Dyspnoea exertional [Unknown]
  - Asthenia [Unknown]

NARRATIVE: CASE EVENT DATE: 201305
